FAERS Safety Report 9798156 (Version 2)
Quarter: 2014Q1

REPORT INFORMATION
  Report Type: Spontaneous
  Country: SE (occurrence: SE)
  Receive Date: 20140106
  Receipt Date: 20140314
  Transmission Date: 20141002
  Serious: Yes (Hospitalization)
  Sender: FDA-Public Use
  Company Number: SE-ABBVIE-14P-150-1185912-00

PATIENT
  Age: 55 Year
  Sex: Female

DRUGS (3)
  1. KLACID [Suspect]
     Indication: DUODENAL ULCER
  2. PROGRAF [Interacting]
     Indication: PRODUCT USED FOR UNKNOWN INDICATION
     Route: 048
  3. PROGRAF [Interacting]

REACTIONS (5)
  - Drug interaction [Not Recovered/Not Resolved]
  - Immunosuppressant drug level increased [Unknown]
  - Renal failure acute [Not Recovered/Not Resolved]
  - Fatigue [Recovering/Resolving]
  - Asthenia [Recovering/Resolving]
